FAERS Safety Report 24226548 (Version 1)
Quarter: 2024Q3

REPORT INFORMATION
  Report Type: Spontaneous
  Country: FR (occurrence: FR)
  Receive Date: 20240820
  Receipt Date: 20240820
  Transmission Date: 20241016
  Serious: Yes (Hospitalization, Other)
  Sender: AJANTA PHARMA
  Company Number: FR-AJANTA-2024AJA00141

PATIENT
  Age: 24 Year
  Sex: Male

DRUGS (2)
  1. ACETAZOLAMIDE [Suspect]
     Active Substance: ACETAZOLAMIDE
     Indication: Herpes ophthalmic
     Route: 048
  2. VALACYCLOVIR [Concomitant]
     Active Substance: VALACYCLOVIR HYDROCHLORIDE
     Route: 042

REACTIONS (2)
  - Retinal vascular occlusion [Recovering/Resolving]
  - Retinopathy sickle cell [Recovering/Resolving]
